FAERS Safety Report 8943086 (Version 1)
Quarter: 2012Q4

REPORT INFORMATION
  Report Type: 
  Country: JP (occurrence: JP)
  Receive Date: 20121204
  Receipt Date: 20121204
  Transmission Date: 20130627
  Serious: Yes (Hospitalization)
  Sender: FDA-Public Use
  Company Number: JP-009507513-2012SP035036

PATIENT
  Age: 60 Year
  Sex: Male
  Weight: 61 kg

DRUGS (16)
  1. PEGINTERFERON ALFA-2B [Suspect]
     Indication: CHRONIC HEPATITIS C
     Dosage: 1.5 ?g/kg, QW
     Route: 058
     Dates: start: 20120308, end: 20120328
  2. PEGINTERFERON ALFA-2B [Suspect]
     Dosage: 0.75 ?g/kg, QW
     Route: 058
     Dates: start: 20120329, end: 20120405
  3. PEGINTERFERON ALFA-2B [Suspect]
     Dosage: 1.5 ?g/kg, QW
     Route: 058
     Dates: start: 20120406, end: 20120525
  4. PEGINTERFERON ALFA-2B [Suspect]
     Dosage: 1.5 Microgram per kilogram, qw
     Route: 058
     Dates: start: 20120613, end: 20120622
  5. REBETOL [Suspect]
     Indication: CHRONIC HEPATITIS C
     Dosage: 800 mg, QD
     Route: 048
     Dates: start: 20120308, end: 20120510
  6. REBETOL [Suspect]
     Dosage: 400 mg, QD
     Route: 048
     Dates: start: 20120511, end: 20120525
  7. REBETOL [Suspect]
     Dosage: 400 mg, qd
     Route: 048
     Dates: start: 20120613, end: 20120629
  8. TELAVIC [Suspect]
     Indication: CHRONIC HEPATITIS C
     Dosage: 2250 mg, QD
     Route: 048
     Dates: start: 20120308, end: 20120510
  9. TELAVIC [Suspect]
     Dosage: 1500 mg, QD
     Route: 048
     Dates: start: 20120511, end: 20120525
  10. URSO [Concomitant]
     Indication: CHRONIC HEPATITIS C
     Dosage: 600 mg, qd
     Route: 048
     Dates: start: 20081215
  11. ALTAT [Concomitant]
     Indication: GASTRIC ULCER
     Dosage: 150 mg, qd
     Route: 048
     Dates: start: 20081215
  12. MUCOSTA [Concomitant]
     Indication: GASTRIC ULCER
     Dosage: 300 mg, qd
     Route: 048
     Dates: start: 20081215
  13. CONSTAN [Concomitant]
     Indication: GASTRIC ULCER
     Dosage: 1.2 mg, qd
     Route: 048
     Dates: start: 20081215
  14. MYSLEE [Concomitant]
     Indication: INSOMNIA
     Dosage: 10 mg, qd
     Route: 048
     Dates: start: 20111128
  15. LENDORMIN D [Concomitant]
     Indication: INSOMNIA
     Dosage: 0.25 mg, qd
     Route: 048
     Dates: start: 20111128
  16. TALION (BEPOTASTINE BESYLATE) [Concomitant]
     Indication: PROPHYLAXIS
     Dosage: 20 mg, qd
     Route: 048
     Dates: end: 20120716

REACTIONS (1)
  - Decreased appetite [Recovered/Resolved]
